FAERS Safety Report 10933449 (Version 1)
Quarter: 2015Q1

REPORT INFORMATION
  Report Type: Spontaneous
  Country: US (occurrence: None)
  Receive Date: 20150319
  Receipt Date: 20150319
  Transmission Date: 20150721
  Serious: Yes (Hospitalization)
  Sender: FDA-Public Use
  Company Number: 2014CT000203

PATIENT
  Age: 70 Year
  Sex: Female
  Weight: 90.72 kg

DRUGS (10)
  1. KORLYM [Suspect]
     Active Substance: MIFEPRISTONE
     Indication: CUSHING^S SYNDROME
     Route: 048
     Dates: start: 201411
  2. VERAPAMIL [Concomitant]
     Active Substance: VERAPAMIL HYDROCHLORIDE
  3. SPIRONOLACTONE. [Concomitant]
     Active Substance: SPIRONOLACTONE
  4. METOPROLOL SUCCINATE. [Concomitant]
     Active Substance: METOPROLOL SUCCINATE
  5. SYNTHROID [Concomitant]
     Active Substance: LEVOTHYROXINE SODIUM
  6. POTASSIUM [Concomitant]
     Active Substance: POTASSIUM
  7. WARFARIN [Concomitant]
     Active Substance: WARFARIN
  8. LEVEMIR [Concomitant]
     Active Substance: INSULIN DETEMIR
  9. CALCIUM CARBONATE. [Concomitant]
     Active Substance: CALCIUM CARBONATE
  10. CRESTOR [Concomitant]
     Active Substance: ROSUVASTATIN CALCIUM

REACTIONS (7)
  - Blood potassium decreased [None]
  - Back pain [None]
  - Peripheral swelling [None]
  - Anticoagulation drug level increased [None]
  - Disease progression [None]
  - Fall [None]
  - Limb discomfort [None]

NARRATIVE: CASE EVENT DATE: 2014
